FAERS Safety Report 9325464 (Version 1)
Quarter: 2013Q2

REPORT INFORMATION
  Report Type: Spontaneous
  Country: US (occurrence: None)
  Receive Date: 20130531
  Receipt Date: 20130531
  Transmission Date: 20140414
  Serious: Yes (Hospitalization)
  Sender: FDA-Public Use
  Company Number: None

PATIENT
  Age: 54 Year
  Sex: Male

DRUGS (1)
  1. OSELTAMIVIR [Suspect]
     Indication: INFLUENZA
     Dosage: 4 DOSES
     Route: 048
     Dates: start: 20130206, end: 20130208

REACTIONS (2)
  - Rhabdomyolysis [None]
  - Renal failure acute [None]
